FAERS Safety Report 18398234 (Version 3)
Quarter: 2020Q4

REPORT INFORMATION
  Report Type: Spontaneous
  Country: GB (occurrence: GB)
  Receive Date: 20201019
  Receipt Date: 20201113
  Transmission Date: 20210114
  Serious: Yes (Hospitalization, Other)
  Sender: FDA-Public Use
  Company Number: GB-TEVA-2020-GB-1838945

PATIENT
  Age: 49 Year
  Sex: Male

DRUGS (14)
  1. CLOZARIL [Suspect]
     Active Substance: CLOZAPINE
     Dosage: 275 MG,THERAPY START DATE :ASKU,THERAPY END DATE :ASKU
     Route: 065
  2. ARIPIPRAZOLE. [Suspect]
     Active Substance: ARIPIPRAZOLE
     Indication: PRODUCT USED FOR UNKNOWN INDICATION
     Dosage: 20 MG,THERAPY START DATE AND END DATE : ASKU
     Route: 065
  3. LITHIUM CARBONATE. [Concomitant]
     Active Substance: LITHIUM CARBONATE
     Indication: PRODUCT USED FOR UNKNOWN INDICATION
     Dosage: 600 MG
     Route: 065
     Dates: start: 20200618
  4. CLOZARIL [Suspect]
     Active Substance: CLOZAPINE
     Dosage: UNK,THERAPY END DATE :ASKU
     Route: 048
     Dates: start: 20150119
  5. OLANZAPINE. [Suspect]
     Active Substance: OLANZAPINE
     Indication: PRODUCT USED FOR UNKNOWN INDICATION
     Dosage: UNK, THERAPY  END DATE : ASKU
     Route: 065
     Dates: start: 2020
  6. SULPIRIDE [Suspect]
     Active Substance: SULPIRIDE
     Indication: PRODUCT USED FOR UNKNOWN INDICATION
     Dosage: UNK, THERAPY END DATE : ASKU
     Route: 065
     Dates: start: 2020
  7. ZUCLOPENTHIXOL [Suspect]
     Active Substance: ZUCLOPENTHIXOL
     Indication: PRODUCT USED FOR UNKNOWN INDICATION
     Dosage: UNK ,QW ,THERAPY  END DATE : ASKU
     Route: 065
     Dates: start: 2020
  8. CLOZARIL [Suspect]
     Active Substance: CLOZAPINE
     Indication: SCHIZOPHRENIA
     Dosage: 350 MILLIGRAM DAILY; THERAPY END DATE : ASKU
     Route: 065
     Dates: start: 201906
  9. LITHIUM CARBONATE. [Concomitant]
     Active Substance: LITHIUM CARBONATE
     Dosage: 400 MG
     Route: 065
     Dates: start: 20200611
  10. QUETIAPINE. [Concomitant]
     Active Substance: QUETIAPINE
     Indication: PRODUCT USED FOR UNKNOWN INDICATION
     Dosage: 800 MG
     Route: 065
  11. VALPROIC ACID. [Suspect]
     Active Substance: VALPROIC ACID
     Indication: PROPHYLAXIS
     Dosage: 500 MILLIGRAM DAILY; THERAPY END DATE : ASKU
     Route: 065
     Dates: start: 2017
  12. CLOZARIL [Suspect]
     Active Substance: CLOZAPINE
     Dosage: 200 MG,THERAPY END DATE :ASKU
     Route: 065
     Dates: start: 201908
  13. CLOZARIL [Suspect]
     Active Substance: CLOZAPINE
     Dosage: 450 MG,THERAPY START DATE: ASKU,THERAPY END DATE:ASKU
     Route: 065
  14. CLOZARIL [Suspect]
     Active Substance: CLOZAPINE
     Dosage: UNK,THERAPY START DATE:ASKU
     Route: 065
     Dates: end: 202004

REACTIONS (14)
  - Red cell distribution width increased [Unknown]
  - Off label use [Unknown]
  - Red blood cell count decreased [Unknown]
  - Cytopenia [Unknown]
  - Thrombocytopenia [Recovering/Resolving]
  - Schizophrenia [Unknown]
  - Electrocardiogram QT prolonged [Recovered/Resolved]
  - White blood cell count decreased [Recovered/Resolved]
  - Eosinophil count decreased [Unknown]
  - Haemoglobin decreased [Unknown]
  - Mean cell volume increased [Unknown]
  - Mean cell haemoglobin concentration decreased [Unknown]
  - Psychotic disorder [Unknown]
  - Neutrophil count decreased [Recovered/Resolved]

NARRATIVE: CASE EVENT DATE: 201901
